FAERS Safety Report 9162286 (Version 1)
Quarter: 2013Q1

REPORT INFORMATION
  Report Type: Spontaneous
  Country: US (occurrence: None)
  Receive Date: 20130222
  Receipt Date: 20130222
  Transmission Date: 20140127
  Serious: Yes (Other)
  Sender: FDA-Public Use
  Company Number: AUR-APL-2013-01453

PATIENT
  Age: 74 Year
  Sex: Male
  Weight: 82 kg

DRUGS (4)
  1. MELOXICAM (MELOXICAM) [Suspect]
     Indication: OSTEOARTHRITIS
     Dosage: (15 MG, 2 IN 1 D)
  2. LYRICA [Suspect]
     Indication: INTERVERTEBRAL DISC DISORDER
     Dosage: (200  MG, 2 IN 1 D)
     Dates: start: 2004, end: 201301
  3. NEURONTIN (GABAPENTIN) [Suspect]
     Indication: INTERVERTEBRAL DISC DISORDER
     Dosage: (300 MG, 3 IN 1 D)
  4. FLOMAX (MORNIFLUMATE) [Concomitant]

REACTIONS (3)
  - Skin burning sensation [None]
  - Blood creatinine increased [None]
  - Renal disorder [None]
